FAERS Safety Report 9123386 (Version 4)
Quarter: 2013Q3

REPORT INFORMATION
  Report Type: Report from Study
  Country: JP (occurrence: JP)
  Receive Date: 20130227
  Receipt Date: 20130710
  Transmission Date: 20140515
  Serious: Yes (Death)
  Sender: FDA-Public Use
  Company Number: JP-ABBOTT-13X-087-1054634-00

PATIENT
  Age: 76 Year
  Sex: Male

DRUGS (9)
  1. LIPACREON [Suspect]
     Indication: PANCREATIC INSUFFICIENCY
     Dosage: SACHET; APPROPRIATELY ADJUSTING
     Route: 048
     Dates: start: 20120420
  2. RABEPRAZOLE SODIUM [Concomitant]
     Indication: PANCREATIC INSUFFICIENCY
  3. RABEPRAZOLE SODIUM [Concomitant]
     Indication: ANTACID THERAPY
  4. FURSEMIDE [Concomitant]
     Indication: PANCREATIC INSUFFICIENCY
     Route: 048
     Dates: start: 20121005, end: 20130124
  5. FURSEMIDE [Concomitant]
     Indication: PANCREATIC CARCINOMA
  6. DEXAMETHASONE [Concomitant]
     Indication: PANCREATIC INSUFFICIENCY
     Route: 048
     Dates: start: 20121122
  7. DEXAMETHASONE [Concomitant]
     Indication: PANCREATIC CARCINOMA
  8. LOXOPROFEN SODIUM [Concomitant]
     Indication: PANCREATIC INSUFFICIENCY
     Route: 048
     Dates: start: 20130110, end: 20130124
  9. LOXOPROFEN SODIUM [Concomitant]
     Indication: PANCREATIC CARCINOMA

REACTIONS (1)
  - Pancreatic carcinoma [Fatal]
